FAERS Safety Report 16793850 (Version 5)
Quarter: 2022Q3

REPORT INFORMATION
  Report Type: Spontaneous
  Country: JP (occurrence: JP)
  Receive Date: 20190911
  Receipt Date: 20220909
  Transmission Date: 20221027
  Serious: Yes (Hospitalization, Other)
  Sender: FDA-Public Use
  Company Number: JP-BRISTOL-MYERS SQUIBB COMPANY-BMS-2018-109943

PATIENT
  Age: 53 Year
  Sex: Male

DRUGS (10)
  1. YERVOY [Suspect]
     Active Substance: IPILIMUMAB
     Indication: Choroid melanoma
     Dosage: 3 MG/KG (26/9/2018,17/10/2018)
     Route: 041
     Dates: start: 20180926, end: 20181017
  2. YERVOY [Suspect]
     Active Substance: IPILIMUMAB
     Indication: Malignant melanoma
  3. OPDIVO [Suspect]
     Active Substance: NIVOLUMAB
     Indication: Malignant melanoma
     Dosage: 80MG (26/9/2018,17/10/2018)
     Route: 041
     Dates: start: 20180926, end: 20181017
  4. OPDIVO [Suspect]
     Active Substance: NIVOLUMAB
     Indication: Choroid melanoma
     Dosage: 240 MG
     Route: 041
     Dates: start: 20190130, end: 20190130
  5. METHYLPREDNISOLONE [Concomitant]
     Active Substance: METHYLPREDNISOLONE
     Indication: Liver disorder
     Dosage: 125 MILLIGRAM
     Route: 065
  6. METHYLPREDNISOLONE [Concomitant]
     Active Substance: METHYLPREDNISOLONE
     Dosage: 30 MILLIGRAM
     Route: 065
  7. METHYLPREDNISOLONE [Concomitant]
     Active Substance: METHYLPREDNISOLONE
     Dosage: 1 MILLIGRAM
     Route: 065
  8. METHYLPREDNISOLONE [Concomitant]
     Active Substance: METHYLPREDNISOLONE
     Dosage: 15 MILLIGRAM
     Route: 065
  9. PREDNISOLONE [Concomitant]
     Active Substance: PREDNISOLONE
     Indication: Liver disorder
     Dosage: 0.5 MILLIGRAM/KILOGRAM
     Route: 065
  10. PREDNISOLONE [Concomitant]
     Active Substance: PREDNISOLONE
     Dosage: 1 MILLIGRAM/KILOGRAM
     Route: 065

REACTIONS (4)
  - Hepatic function abnormal [Recovered/Resolved]
  - Colitis [Recovered/Resolved]
  - Erythema multiforme [Recovered/Resolved]
  - Sialoadenitis [Recovered/Resolved]

NARRATIVE: CASE EVENT DATE: 20181010
